FAERS Safety Report 6763605-9 (Version None)
Quarter: 2010Q2

REPORT INFORMATION
  Report Type: 
  Country: None (occurrence: None)
  Receive Date: 20100610
  Receipt Date: 20100511
  Transmission Date: 20101027
  Serious: Yes (Hospitalization)
  Sender: FDA-Public Use
  Company Number: FR-CELGENEUS-056-C5013-09121538

PATIENT
  Sex: Female
  Weight: 48 kg

DRUGS (9)
  1. CC-5013 [Suspect]
     Indication: MULTIPLE MYELOMA
     Route: 048
     Dates: start: 20091128, end: 20091216
  2. CC-5013 [Suspect]
     Route: 048
     Dates: start: 20090515
  3. CC-5013 [Suspect]
     Route: 048
     Dates: start: 20100118
  4. DEXAMETHASONE [Suspect]
     Indication: MULTIPLE MYELOMA
     Route: 065
     Dates: start: 20091128, end: 20091216
  5. DEXAMETHASONE [Suspect]
     Route: 065
     Dates: start: 20090515
  6. AMLODIPINE [Concomitant]
     Indication: HYPERTENSION
     Route: 048
     Dates: start: 19890101
  7. GLICLAZIDE [Concomitant]
     Route: 048
     Dates: start: 20050101
  8. PREVISCAN [Concomitant]
     Indication: THROMBOSIS PROPHYLAXIS
     Route: 048
     Dates: start: 20090515
  9. BACTRIM DS [Concomitant]
     Indication: INFECTION PROPHYLAXIS
     Route: 048
     Dates: start: 20090515

REACTIONS (1)
  - OSTEOARTHRITIS [None]
